FAERS Safety Report 12499292 (Version 1)
Quarter: 2016Q2

REPORT INFORMATION
  Report Type: Not Available
  Country: US (occurrence: US)
  Receive Date: 20160627
  Receipt Date: 20160627
  Transmission Date: 20160815
  Serious: Yes (Hospitalization)
  Sender: FDA-Public Use
  Company Number: US-MIDATECHPHARMA-2016-US-004258

PATIENT
  Age: 44 Year
  Sex: Male

DRUGS (3)
  1. VORINOSTAT [Concomitant]
     Active Substance: VORINOSTAT
     Dosage: UNKNOWN
     Route: 065
  2. CYTARABINE. [Concomitant]
     Active Substance: CYTARABINE
     Dosage: UNKNOWN
     Route: 065
  3. ONDANSETRON (NON-SPECIFIC) [Suspect]
     Active Substance: ONDANSETRON
     Dosage: UNKNOWN
     Route: 065

REACTIONS (4)
  - Electrocardiogram QT prolonged [Recovered/Resolved]
  - Torsade de pointes [Recovered/Resolved]
  - Cardiac arrest [Recovered/Resolved]
  - Electrocardiogram abnormal [Recovered/Resolved]
